FAERS Safety Report 10166187 (Version 1)
Quarter: 2014Q2

REPORT INFORMATION
  Report Type: Spontaneous
  Country: US (occurrence: US)
  Receive Date: 20140512
  Receipt Date: 20140512
  Transmission Date: 20141212
  Serious: No
  Sender: FDA-Public Use
  Company Number: US-BIOGENIDEC-2014BI043131

PATIENT
  Sex: Female

DRUGS (3)
  1. TYSABRI [Suspect]
     Indication: MULTIPLE SCLEROSIS
     Route: 042
     Dates: start: 20071004, end: 20130723
  2. LATERIS [Concomitant]
     Indication: PULMONARY HYPERTENSION
  3. ALLI [Concomitant]
     Indication: WEIGHT DECREASED

REACTIONS (1)
  - Weight decreased [Unknown]
